FAERS Safety Report 9328449 (Version 1)
Quarter: 2013Q2

REPORT INFORMATION
  Report Type: Spontaneous
  Country: US (occurrence: US)
  Receive Date: 20130604
  Receipt Date: 20130604
  Transmission Date: 20140414
  Serious: No
  Sender: FDA-Public Use
  Company Number: US-SANOFI-AVENTIS-2013SA005711

PATIENT
  Age: 73 Year
  Sex: Female

DRUGS (4)
  1. LANTUS SOLOSTAR [Suspect]
     Indication: DAWN PHENOMENON
     Route: 051
     Dates: start: 2008
  2. SOLOSTAR [Suspect]
     Indication: DAWN PHENOMENON
     Dates: start: 2008
  3. GLIMEPIRIDE [Concomitant]
  4. METFORMIN [Concomitant]

REACTIONS (2)
  - Musculoskeletal stiffness [Unknown]
  - Hordeolum [Unknown]
